FAERS Safety Report 18002138 (Version 1)
Quarter: 2020Q3

REPORT INFORMATION
  Report Type: Spontaneous
  Country: CA (occurrence: CA)
  Receive Date: 20200709
  Receipt Date: 20200709
  Transmission Date: 20201103
  Serious: Yes (Hospitalization)
  Sender: FDA-Public Use
  Company Number: CA-TEVA-2020-CA-1798013

PATIENT
  Age: 78 Year
  Sex: Female

DRUGS (13)
  1. SENOKOT [Concomitant]
     Active Substance: SENNOSIDES
  2. VITAMIN B COMPLEX [Concomitant]
     Active Substance: CYANOCOBALAMIN\DEXPANTHENOL\NIACINAMIDE\PYRIDOXINE HYDROCHLORIDE\RIBOFLAVIN 5^-PHOSPHATE SODIUM\THIAMINE HYDROCHLORIDE\VITAMIN B COMPLEX
  3. RAMIPRIL. [Suspect]
     Active Substance: RAMIPRIL
     Dosage: 10 DOSAGE FORMS DAILY;
     Route: 065
  4. AMLODIPINE [Concomitant]
     Active Substance: AMLODIPINE BESYLATE
  5. BISOPROLOL [Concomitant]
     Active Substance: BISOPROLOL
  6. RISPERIDONE. [Concomitant]
     Active Substance: RISPERIDONE
  7. VITAMIN D [Concomitant]
     Active Substance: VITAMIN D NOS
  8. GABAPENTIN. [Concomitant]
     Active Substance: GABAPENTIN
  9. LITHIUM. [Concomitant]
     Active Substance: LITHIUM
  10. PANTOPRAZOLE [Concomitant]
     Active Substance: PANTOPRAZOLE
  11. ATORVASTATIN [Concomitant]
     Active Substance: ATORVASTATIN
  12. HALOPERIDOL. [Concomitant]
     Active Substance: HALOPERIDOL
  13. CLOPIDOGREL [Concomitant]
     Active Substance: CLOPIDOGREL BISULFATE

REACTIONS (6)
  - Hypophagia [Unknown]
  - Blood creatinine increased [Unknown]
  - Blood pressure systolic abnormal [Unknown]
  - Heart rate decreased [Unknown]
  - Depressed level of consciousness [Unknown]
  - Asthenia [Unknown]
